FAERS Safety Report 7467467-6 (Version None)
Quarter: 2011Q2

REPORT INFORMATION
  Report Type: 
  Country: None (occurrence: None)
  Receive Date: 20110509
  Receipt Date: 20110407
  Transmission Date: 20111010
  Serious: No
  Sender: FDA-Public Use
  Company Number: US-SANOFI-AVENTIS-2011SA022302

PATIENT
  Age: 69 Year
  Sex: Female

DRUGS (8)
  1. LANTUS [Suspect]
     Indication: DIABETES MELLITUS
     Dosage: DOSE:10 UNIT(S)
     Route: 058
     Dates: start: 20110406
  2. LANTUS [Suspect]
     Indication: DIABETES MELLITUS
     Dosage: LOT # PROVIDED AS 05300A, FOUND TO BE INVALID
     Dates: start: 20110406
  3. NOVOLOG [Concomitant]
     Dates: end: 20110405
  4. LANTUS [Suspect]
     Dosage: LOT # PROVIDED AS 05300A, FOUND TO BE INVALID
     Dates: start: 20110406
  5. APIDRA [Suspect]
     Dosage: LOT # PROVIDED AS 05300A, FOUND TO BE INVALID DOSE:3 UNIT(S)
     Route: 058
     Dates: start: 20110406
  6. LANTUS [Suspect]
     Dates: start: 20110406
  7. HUMALOG [Concomitant]
     Dates: end: 20110405
  8. APIDRA [Suspect]
     Indication: DIABETES MELLITUS
     Dosage: LOT # PROVIDED AS 05300A, FOUND TO BE INVALID DOSE:3 UNIT(S)
     Route: 058
     Dates: start: 20110406

REACTIONS (3)
  - INJURY ASSOCIATED WITH DEVICE [None]
  - PRODUCT QUALITY ISSUE [None]
  - BLOOD GLUCOSE INCREASED [None]
